FAERS Safety Report 14124865 (Version 2)
Quarter: 2017Q4

REPORT INFORMATION
  Report Type: Spontaneous
  Country: US (occurrence: US)
  Receive Date: 20171025
  Receipt Date: 20171107
  Transmission Date: 20180321
  Serious: Yes (Hospitalization, Other)
  Sender: FDA-Public Use
  Company Number: US-ASTRAZENECA-2017SF06765

PATIENT
  Age: 26 Year
  Sex: Male

DRUGS (1)
  1. SEROQUEL [Suspect]
     Active Substance: QUETIAPINE FUMARATE
     Dosage: APPROXIMATELY 18000MG
     Route: 048

REACTIONS (3)
  - Seizure [Unknown]
  - Overdose [Unknown]
  - Toxicity to various agents [Unknown]
